FAERS Safety Report 8269845-4 (Version None)
Quarter: 2012Q2

REPORT INFORMATION
  Report Type: 
  Country: None (occurrence: None)
  Receive Date: 20120410
  Receipt Date: 20120404
  Transmission Date: 20120825
  Serious: Yes (Death)
  Sender: FDA-Public Use
  Company Number: US-BAYER-2012-033873

PATIENT
  Age: 59 Year
  Sex: Female

DRUGS (9)
  1. NEXAVAR [Suspect]
     Indication: HEPATIC NEOPLASM MALIGNANT
     Dosage: 200 MG, BID
     Route: 048
     Dates: start: 20111207, end: 20120228
  2. HYDROXYZINE HCL [Concomitant]
  3. FEXOFENADINE [Concomitant]
  4. AMIODARONE HYDROCHLORIDE [Concomitant]
  5. FUROSEMIDE [Concomitant]
  6. INSULIN [Concomitant]
  7. FERROUS SULFATE TAB [Concomitant]
  8. METOLAZONE [Concomitant]
  9. LEVOTHYROXINE SODIUM [Concomitant]

REACTIONS (1)
  - DEATH [None]
